FAERS Safety Report 7390924-8 (Version None)
Quarter: 2011Q2

REPORT INFORMATION
  Report Type: 
  Country: None (occurrence: None)
  Receive Date: 20110404
  Receipt Date: 20091026
  Transmission Date: 20111010
  Serious: No
  Sender: FDA-Public Use
  Company Number: 2009BI034907

PATIENT
  Sex: Male

DRUGS (1)
  1. TYSABRI [Suspect]
     Indication: MULTIPLE SCLEROSIS
     Route: 042
     Dates: start: 20081218, end: 20091210

REACTIONS (8)
  - MOTOR DYSFUNCTION [None]
  - DISSOCIATIVE IDENTITY DISORDER [None]
  - GAIT DISTURBANCE [None]
  - PERONEAL NERVE PALSY [None]
  - BALANCE DISORDER [None]
  - DRUG INEFFECTIVE [None]
  - MULTIPLE SCLEROSIS [None]
  - MOBILITY DECREASED [None]
